FAERS Safety Report 5914329-9 (Version None)
Quarter: 2008Q4

REPORT INFORMATION
  Report Type: 
  Country: None (occurrence: None)
  Receive Date: 20081007
  Receipt Date: 20080926
  Transmission Date: 20090506
  Serious: Yes (Hospitalization)
  Sender: FDA-Public Use
  Company Number: 2005BI007010

PATIENT
  Age: 60 Year
  Sex: Female
  Weight: 72.5755 kg

DRUGS (18)
  1. AVONEX [Suspect]
     Indication: MULTIPLE SCLEROSIS
     Dosage: 30 UG QW IM
     Route: 030
     Dates: start: 20000901, end: 20030801
  2. AVONEX [Suspect]
     Indication: MULTIPLE SCLEROSIS
     Dosage: 30 UG QW IM
     Route: 030
     Dates: start: 20030801
  3. LASIX [Concomitant]
  4. LEVOTHROID [Concomitant]
  5. LOTREL [Concomitant]
  6. MOBIC [Concomitant]
  7. SINGULAIR [Concomitant]
  8. ALBUTEROL [Concomitant]
  9. COMBIVENT [Concomitant]
  10. ISOSORBIDE [Concomitant]
  11. ZANAFLEX [Concomitant]
  12. BACLOFEN [Concomitant]
  13. DUONEB [Concomitant]
  14. ADVAIR DISKUS 100/50 [Concomitant]
  15. ANALGESIC PATCH [Concomitant]
  16. HYDROCODONE BITARTRATE [Concomitant]
  17. DARVOCET [Concomitant]
  18. TYLENOL [Concomitant]

REACTIONS (15)
  - ACTIVITIES OF DAILY LIVING IMPAIRED [None]
  - DEPRESSION [None]
  - DRY EYE [None]
  - EMPHYSEMA [None]
  - FATIGUE [None]
  - GAIT DISTURBANCE [None]
  - GASTROOESOPHAGEAL REFLUX DISEASE [None]
  - HALLUCINATION [None]
  - HYPOTENSION [None]
  - MEMORY IMPAIRMENT [None]
  - MUSCLE SPASMS [None]
  - MUSCLE SPASTICITY [None]
  - OSTEOPOROSIS [None]
  - TRANSIENT ISCHAEMIC ATTACK [None]
  - URINARY RETENTION [None]
